FAERS Safety Report 4918489-8 (Version None)
Quarter: 2006Q1

REPORT INFORMATION
  Report Type: 
  Country: None (occurrence: None)
  Receive Date: 20060217
  Receipt Date: 20060217
  Transmission Date: 20060701
  Serious: Yes (Other)
  Sender: FDA-Public Use
  Company Number: None

PATIENT
  Age: 74 Year
  Sex: Male

DRUGS (2)
  1. CELEBREX [Suspect]
     Indication: OEDEMA PERIPHERAL
     Dosage: BID PO
     Route: 048
     Dates: start: 20060127, end: 20060203
  2. CELEBREX [Suspect]
     Indication: OEDEMA PERIPHERAL
     Dosage: BID PO
     Route: 048
     Dates: start: 20060207, end: 20060209

REACTIONS (6)
  - ARTHRALGIA [None]
  - ASTHENIA [None]
  - CHILLS [None]
  - FATIGUE [None]
  - PYREXIA [None]
  - SOMNOLENCE [None]
